FAERS Safety Report 9518816 (Version 3)
Quarter: 2013Q4

REPORT INFORMATION
  Report Type: Spontaneous
  Country: BR (occurrence: BR)
  Receive Date: 20130912
  Receipt Date: 20131212
  Transmission Date: 20140711
  Serious: Yes (Hospitalization, Other)
  Sender: FDA-Public Use
  Company Number: BR-ASTRAZENECA-2013SE67844

PATIENT
  Age: 65 Year
  Sex: Female

DRUGS (1)
  1. BRILINTA [Suspect]
     Route: 048
     Dates: start: 2013, end: 2013

REACTIONS (3)
  - Venous occlusion [Recovered/Resolved]
  - Hernia [Not Recovered/Not Resolved]
  - Intestinal perforation [Not Recovered/Not Resolved]
